FAERS Safety Report 8238133-4 (Version None)
Quarter: 2012Q1

REPORT INFORMATION
  Report Type: 
  Country: None (occurrence: None)
  Receive Date: 20120327
  Receipt Date: 20120323
  Transmission Date: 20120608
  Serious: Yes (Hospitalization, Other)
  Sender: FDA-Public Use
  Company Number: US-BAYER-200939465NA

PATIENT
  Age: 73 Year
  Sex: Female

DRUGS (10)
  1. TRAZODONE HCL [Concomitant]
     Dosage: 50 MG, HS
  2. METOPROLOL SUCCINATE [Concomitant]
     Dosage: 25 MG, BID
  3. SOLU-MEDROL [Concomitant]
     Dosage: 1 G, UNK
     Route: 042
  4. BETASERON [Suspect]
     Dosage: 8 MIU, QOD
     Route: 058
     Dates: start: 20090212
  5. BETASERON [Suspect]
     Indication: RELAPSING-REMITTING MULTIPLE SCLEROSIS
     Dosage: AS USED DOSE: UNK
     Route: 058
     Dates: start: 20021221, end: 20070101
  6. BETASERON [Suspect]
     Dosage: 8 MIU, QOD
     Route: 058
  7. BETASERON [Suspect]
     Dosage: 8 MIU, QOD
     Route: 058
  8. TRAMADOL HCL [Suspect]
     Indication: PRODUCT USED FOR UNKNOWN INDICATION
     Dosage: AS USED DOSE: UNK
     Route: 065
  9. CORTISONE ACETATE [Concomitant]
     Route: 042
  10. SERTRALINE HYDROCHLORIDE [Suspect]
     Indication: PRODUCT USED FOR UNKNOWN INDICATION
     Dosage: AS USED DOSE: UNK
     Route: 065

REACTIONS (18)
  - DIZZINESS POSTURAL [None]
  - HYPERHIDROSIS [None]
  - SLEEP APNOEA SYNDROME [None]
  - VENTRICULAR EXTRASYSTOLES [None]
  - DEPRESSED MOOD [None]
  - PAIN [None]
  - MULTIPLE SCLEROSIS RELAPSE [None]
  - HEART RATE INCREASED [None]
  - DEHYDRATION [None]
  - BLOOD POTASSIUM DECREASED [None]
  - NECK PAIN [None]
  - ADVERSE DRUG REACTION [None]
  - SUPRAVENTRICULAR EXTRASYSTOLES [None]
  - SPONDYLITIS [None]
  - SPINAL CORD COMPRESSION [None]
  - VENTRICULAR TACHYCARDIA [None]
  - BLOOD PRESSURE INCREASED [None]
  - INTERVERTEBRAL DISC DEGENERATION [None]
